FAERS Safety Report 25242238 (Version 4)
Quarter: 2025Q4

REPORT INFORMATION
  Report Type: Report from Study
  Country: US (occurrence: US)
  Receive Date: 20250426
  Receipt Date: 20251009
  Transmission Date: 20260117
  Serious: Yes (Other)
  Sender: ABBVIE
  Company Number: US-ABBVIE-6250275

PATIENT
  Age: 63 Year
  Sex: Female
  Weight: 100 kg

DRUGS (3)
  1. IMBRUVICA [Suspect]
     Active Substance: IBRUTINIB
     Indication: Chronic lymphocytic leukaemia
     Route: 048
     Dates: start: 202209
  2. IMBRUVICA [Suspect]
     Active Substance: IBRUTINIB
     Indication: Chronic lymphocytic leukaemia
     Route: 048
     Dates: start: 20211014
  3. IMBRUVICA [Suspect]
     Active Substance: IBRUTINIB
     Indication: Chronic lymphocytic leukaemia
     Route: 048
     Dates: start: 20250210, end: 20250211

REACTIONS (9)
  - Vein rupture [Unknown]
  - White blood cell count increased [Recovered/Resolved]
  - Sinusitis [Unknown]
  - Abdominal pain upper [Unknown]
  - Muscle spasms [Unknown]
  - Dyspepsia [Unknown]
  - Arthritis [Unknown]
  - Dyspnoea [Unknown]
  - White blood cell count increased [Recovering/Resolving]

NARRATIVE: CASE EVENT DATE: 20250918
